FAERS Safety Report 8010451-4 (Version None)
Quarter: 2011Q4

REPORT INFORMATION
  Report Type: 
  Country: None (occurrence: None)
  Receive Date: 20111223
  Receipt Date: 20111223
  Transmission Date: 20120403
  Serious: Yes (Other)
  Sender: FDA-Public Use
  Company Number: None

PATIENT
  Age: 55 Month
  Sex: Male
  Weight: 24.9478 kg

DRUGS (5)
  1. CLARITIN [Concomitant]
  2. QVAR 40 [Concomitant]
  3. ALBUTEROL [Concomitant]
  4. SINGULAIR [Suspect]
     Indication: ASTHMA
     Dosage: 5 MG  Q DAY CHEW TAB
     Route: 048
     Dates: start: 20111110
  5. FLONASE [Concomitant]

REACTIONS (2)
  - AGGRESSION [None]
  - NEGATIVISM [None]
